FAERS Safety Report 5689063-3 (Version None)
Quarter: 2008Q1

REPORT INFORMATION
  Report Type: 
  Country: None (occurrence: None)
  Receive Date: 20080331
  Receipt Date: 20080327
  Transmission Date: 20080703
  Serious: Yes (Other)
  Sender: FDA-Public Use
  Company Number: B0514030A

PATIENT
  Age: 40 Year
  Sex: Female

DRUGS (1)
  1. ZINACEF [Suspect]
     Indication: DRUG USE FOR UNKNOWN INDICATION
     Dosage: 1.5G SINGLE DOSE
     Route: 042
     Dates: start: 20080101, end: 20080101

REACTIONS (2)
  - BLOOD TEST ABNORMAL [None]
  - JAUNDICE CHOLESTATIC [None]
